FAERS Safety Report 13928329 (Version 1)
Quarter: 2017Q3

REPORT INFORMATION
  Report Type: Spontaneous
  Country: US (occurrence: None)
  Receive Date: 20170901
  Receipt Date: 20170901
  Transmission Date: 20171127
  Serious: Yes (Disabling)
  Sender: FDA-Public Use
  Company Number: None

PATIENT
  Age: 60 Year
  Sex: Female
  Weight: 127.01 kg

DRUGS (12)
  1. LEVOFLOXACIN 750MG TABLET [Suspect]
     Active Substance: LEVOFLOXACIN
     Indication: PNEUMONIA
     Route: 048
     Dates: start: 20170406, end: 20170416
  2. LAMOTROGINE [Concomitant]
     Active Substance: LAMOTRIGINE
  3. METFORMINE [Concomitant]
     Active Substance: METFORMIN HYDROCHLORIDE
  4. GLIMEPIRIDE. [Concomitant]
     Active Substance: GLIMEPIRIDE
  5. PIOGLITAZONE. [Concomitant]
     Active Substance: PIOGLITAZONE
  6. LEVOTHYROXINE. [Concomitant]
     Active Substance: LEVOTHYROXINE
  7. BUPROPION. [Concomitant]
     Active Substance: BUPROPION
  8. SEROQUEL [Concomitant]
     Active Substance: QUETIAPINE FUMARATE
  9. VITAMIN B [Concomitant]
     Active Substance: VITAMIN B
  10. FAMOTIDINE. [Concomitant]
     Active Substance: FAMOTIDINE
  11. IRON [Concomitant]
     Active Substance: IRON
  12. GABAPENTIN. [Concomitant]
     Active Substance: GABAPENTIN

REACTIONS (7)
  - Pain [None]
  - Muscle tightness [None]
  - Impaired work ability [None]
  - Dysstasia [None]
  - Loss of personal independence in daily activities [None]
  - Gait disturbance [None]
  - Movement disorder [None]
